FAERS Safety Report 9129680 (Version 2)
Quarter: 2013Q1

REPORT INFORMATION
  Report Type: Report from Study
  Country: US (occurrence: US)
  Receive Date: 20130228
  Receipt Date: 20130312
  Transmission Date: 20140127
  Serious: Yes (Hospitalization)
  Sender: FDA-Public Use
  Company Number: US-ACTELION-A-NJ2012-76610

PATIENT
  Age: 73 Year
  Sex: Male

DRUGS (1)
  1. TRACLEER [Suspect]
     Indication: PULMONARY ARTERIAL HYPERTENSION
     Dosage: UNK
     Route: 048

REACTIONS (6)
  - Swelling [Unknown]
  - Blood sodium increased [Recovering/Resolving]
  - Abdominal distension [Recovering/Resolving]
  - Cardiac failure congestive [Recovering/Resolving]
  - Syncope [Recovering/Resolving]
  - Drug dose omission [Unknown]
